FAERS Safety Report 25626342 (Version 1)
Quarter: 2025Q3

REPORT INFORMATION
  Report Type: Spontaneous
  Country: GB (occurrence: GB)
  Receive Date: 20250731
  Receipt Date: 20250731
  Transmission Date: 20251020
  Serious: Yes (Other)
  Sender: TEVA
  Company Number: GB-MHRA-TPP8873219C2182674YC1753343282301

PATIENT
  Age: 76 Year
  Sex: Female
  Weight: 70 kg

DRUGS (5)
  1. BISOPROLOL [Suspect]
     Active Substance: BISOPROLOL
     Indication: Ill-defined disorder
     Route: 065
     Dates: start: 20250724
  2. BISOPROLOL [Concomitant]
     Active Substance: BISOPROLOL
     Indication: Ill-defined disorder
     Dosage: EVERY MORNING
     Dates: start: 20250620
  3. ESTRADIOL VALERATE [Concomitant]
     Active Substance: ESTRADIOL VALERATE
     Indication: Ill-defined disorder
     Dates: start: 20241220
  4. ATORVASTATIN [Concomitant]
     Active Substance: ATORVASTATIN
     Indication: Ill-defined disorder
     Dates: start: 20241220
  5. GABAPENTIN [Concomitant]
     Active Substance: GABAPENTIN
     Indication: Ill-defined disorder
     Dates: start: 20241220

REACTIONS (3)
  - Nausea [Recovered/Resolved]
  - Hypotension [Recovered/Resolved]
  - Decreased appetite [Recovered/Resolved]

NARRATIVE: CASE EVENT DATE: 20250724
